FAERS Safety Report 9285481 (Version 2)
Quarter: 2013Q2

REPORT INFORMATION
  Report Type: Spontaneous
  Country: US (occurrence: US)
  Receive Date: 20130513
  Receipt Date: 20130520
  Transmission Date: 20140414
  Serious: No
  Sender: FDA-Public Use
  Company Number: US-PFIZER INC-2013145371

PATIENT
  Age: 46 Year
  Sex: Male
  Weight: 140.59 kg

DRUGS (4)
  1. DILANTIN [Suspect]
     Indication: CONVULSION
     Dosage: 100 MG, 3X/DAY
     Route: 048
  2. DILANTIN [Suspect]
     Dosage: 300 MG, 3X/DAY
     Route: 048
     Dates: start: 2002, end: 2011
  3. DEPAKOTE [Concomitant]
     Indication: CONVULSION
     Dosage: 600 MG, 3X/DAY
  4. CITALOPRAM [Concomitant]
     Indication: DEPRESSION
     Dosage: 40 MG, 2X/DAY

REACTIONS (7)
  - Rash [Recovering/Resolving]
  - Skin exfoliation [Recovering/Resolving]
  - Blister [Not Recovered/Not Resolved]
  - Deformity [Not Recovered/Not Resolved]
  - Gynaecomastia [Not Recovered/Not Resolved]
  - Amnesia [Not Recovered/Not Resolved]
  - Dry skin [Not Recovered/Not Resolved]
